FAERS Safety Report 16820358 (Version 1)
Quarter: 2019Q3

REPORT INFORMATION
  Report Type: Spontaneous
  Country: FR (occurrence: FR)
  Receive Date: 20190918
  Receipt Date: 20190918
  Transmission Date: 20191005
  Serious: Yes (Disabling, Other)
  Sender: FDA-Public Use
  Company Number: FR-SA-2019SA255368

PATIENT
  Age: 51 Year
  Sex: Male
  Weight: 51.9 kg

DRUGS (4)
  1. LEVOFLOXACINE ARROW [Suspect]
     Active Substance: LEVOFLOXACIN
     Indication: DISSEMINATED TUBERCULOSIS
     Dosage: 500 MG, QD
     Route: 048
     Dates: start: 20190723, end: 20190820
  2. RIFADIN [Suspect]
     Active Substance: RIFAMPIN
     Indication: DISSEMINATED TUBERCULOSIS
     Dosage: 4 DF, QD
     Route: 048
     Dates: start: 20190724
  3. PREGABALIN. [Suspect]
     Active Substance: PREGABALIN
     Indication: NEUROPATHY PERIPHERAL
     Dosage: 100 MG, QD
     Route: 048
     Dates: start: 20190726, end: 20190820
  4. DEXAMBUTOL [Suspect]
     Active Substance: ETHAMBUTOL HYDROCHLORIDE
     Indication: DISSEMINATED TUBERCULOSIS
     Dosage: 1000 MG, QD
     Route: 048
     Dates: start: 20190418, end: 20190718

REACTIONS (2)
  - Papilloedema [Not Recovered/Not Resolved]
  - Amaurosis [Not Recovered/Not Resolved]

NARRATIVE: CASE EVENT DATE: 20190813
